FAERS Safety Report 8845044 (Version 2)
Quarter: 2012Q4

REPORT INFORMATION
  Report Type: 
  Country: US (occurrence: US)
  Receive Date: 20121017
  Receipt Date: 20121116
  Transmission Date: 20130627
  Serious: Yes (Death)
  Sender: FDA-Public Use
  Company Number: US-PFIZER INC-2012254921

PATIENT
  Age: 33 Year
  Sex: Male

DRUGS (1)
  1. XALKORI [Suspect]
     Indication: LUNG CANCER
     Dosage: 250 mg, UNK
     Dates: start: 20120603, end: 20121009

REACTIONS (2)
  - Disease progression [Fatal]
  - Lung neoplasm malignant [Fatal]
